FAERS Safety Report 6926210-7 (Version None)
Quarter: 2010Q3

REPORT INFORMATION
  Report Type: 
  Country: None (occurrence: None)
  Receive Date: 20100813
  Receipt Date: 20100813
  Transmission Date: 20110219
  Serious: Yes (Disabling, Other)
  Sender: FDA-Public Use
  Company Number: None

PATIENT
  Age: 38 Year
  Sex: Female
  Weight: 99.7913 kg

DRUGS (2)
  1. ABILIFY [Suspect]
     Indication: ANXIETY
     Dosage: 30 MG ONCE A DAY PO
     Route: 048
     Dates: start: 20051101, end: 20060403
  2. ABILIFY [Suspect]
     Indication: DEPRESSION
     Dosage: 30 MG ONCE A DAY PO
     Route: 048
     Dates: start: 20051101, end: 20060403

REACTIONS (7)
  - AGEUSIA [None]
  - CONSTIPATION [None]
  - DRUG EXPOSURE DURING PREGNANCY [None]
  - DRY MOUTH [None]
  - GESTATIONAL DIABETES [None]
  - HEADACHE [None]
  - TREMOR [None]
